FAERS Safety Report 20900152 (Version 2)
Quarter: 2022Q2

REPORT INFORMATION
  Report Type: Spontaneous
  Country: GB (occurrence: GB)
  Receive Date: 20220601
  Receipt Date: 20220622
  Transmission Date: 20220720
  Serious: Yes (Other)
  Sender: FDA-Public Use
  Company Number: GB-CELLTRION INC.-2022GB007804

PATIENT

DRUGS (1)
  1. INFLIXIMAB [Suspect]
     Active Substance: INFLIXIMAB
     Indication: Colitis ulcerative
     Dosage: 120 MILLIGRAM
     Route: 058
     Dates: start: 202111, end: 202205

REACTIONS (3)
  - COVID-19 [Unknown]
  - Therapy change [Unknown]
  - Treatment failure [Unknown]
